FAERS Safety Report 11649340 (Version 1)
Quarter: 2015Q4

REPORT INFORMATION
  Report Type: Report from Study
  Country: US (occurrence: US)
  Receive Date: 20151021
  Receipt Date: 20151021
  Transmission Date: 20160304
  Serious: Yes (Death, Hospitalization)
  Sender: FDA-Public Use
  Company Number: US-JNJFOC-20150802119

PATIENT
  Age: 62 Year
  Sex: Female
  Weight: 70.31 kg

DRUGS (15)
  1. LEVOCETIRIZINE [Concomitant]
     Active Substance: LEVOCETIRIZINE
     Dosage: IN EVENING
     Route: 048
     Dates: end: 20150608
  2. REMICADE [Suspect]
     Active Substance: INFLIXIMAB
     Indication: CROHN^S DISEASE
     Dosage: MID OF MAY-2015
     Route: 042
     Dates: start: 201505
  3. SINGULAIR [Concomitant]
     Active Substance: MONTELUKAST SODIUM
     Route: 065
  4. MONTELUKAST [Concomitant]
     Active Substance: MONTELUKAST SODIUM
     Dosage: IN EVENING
     Route: 048
     Dates: start: 20150402, end: 20150608
  5. FISH OIL [Concomitant]
     Active Substance: FISH OIL
     Route: 048
  6. POLY IRON [Concomitant]
     Active Substance: DIETARY SUPPLEMENT
     Route: 048
     Dates: end: 20150608
  7. CALCIUM AND VITAMIN D [Concomitant]
     Active Substance: CALCIUM\VITAMIN D
     Route: 048
     Dates: start: 20140509, end: 20150608
  8. FLUTICASONE [Concomitant]
     Active Substance: FLUTICASONE\FLUTICASONE PROPIONATE
     Indication: HYPERSENSITIVITY
     Route: 045
     Dates: start: 20140402, end: 20150608
  9. IMURAN [Concomitant]
     Active Substance: AZATHIOPRINE
     Route: 048
  10. ACETAMINOPHEN. [Concomitant]
     Active Substance: ACETAMINOPHEN
     Indication: PAIN
     Dosage: 2 TABLETS EVERY 6 HOURS AS NEEDED
     Route: 048
  11. REMICADE [Suspect]
     Active Substance: INFLIXIMAB
     Indication: CROHN^S DISEASE
     Dosage: LOADING DOSE
     Route: 042
     Dates: start: 20150506
  12. ACETAMINOPHEN. [Concomitant]
     Active Substance: ACETAMINOPHEN
     Indication: PAIN
     Dosage: 2 TABLETS EVERY 6 HOURS AS NEEDED
     Route: 048
     Dates: start: 20150402, end: 20150608
  13. AZATHIOPRINE. [Concomitant]
     Active Substance: AZATHIOPRINE
     Route: 048
     Dates: end: 20150608
  14. REMICADE [Suspect]
     Active Substance: INFLIXIMAB
     Indication: CROHN^S DISEASE
     Route: 042
     Dates: start: 20150521
  15. CENTRUM SILVER [Concomitant]
     Active Substance: MINERALS\VITAMINS
     Dosage: 0.4MG-300-MCG-250MCG
     Route: 048
     Dates: end: 20150608

REACTIONS (17)
  - Acute respiratory failure [Unknown]
  - Fatigue [Unknown]
  - Oedema peripheral [Unknown]
  - Dysphagia [Unknown]
  - Atrial natriuretic peptide increased [Unknown]
  - Cerebrovascular accident [Fatal]
  - Presyncope [Unknown]
  - Sepsis [Unknown]
  - Pneumonia [Unknown]
  - Chronic obstructive pulmonary disease [Unknown]
  - Carotid artery occlusion [Unknown]
  - Hypoxia [Unknown]
  - Epilepsy [Unknown]
  - Lymphadenopathy mediastinal [Unknown]
  - Musculoskeletal pain [Unknown]
  - Fall [Unknown]
  - Aspartate aminotransferase increased [Unknown]

NARRATIVE: CASE EVENT DATE: 20150602
